FAERS Safety Report 10468675 (Version 1)
Quarter: 2014Q3

REPORT INFORMATION
  Report Type: Report from Study
  Country: US (occurrence: US)
  Receive Date: 20140922
  Receipt Date: 20140922
  Transmission Date: 20150326
  Serious: Yes (Other)
  Sender: FDA-Public Use
  Company Number: US-ALEXION PHARMACEUTICALS INC-A201203107

PATIENT
  Sex: Female

DRUGS (3)
  1. PROCRIT [Concomitant]
     Active Substance: ERYTHROPOIETIN
     Dosage: UNK
  2. VITAMIN B12 [Concomitant]
     Active Substance: CYANOCOBALAMIN
     Dosage: UNK
  3. SOLIRIS [Suspect]
     Active Substance: ECULIZUMAB
     Indication: PAROXYSMAL NOCTURNAL HAEMOGLOBINURIA
     Dosage: UNK
     Route: 042

REACTIONS (8)
  - Gastric ulcer [Unknown]
  - Haemoglobinuria [Unknown]
  - Fatigue [Unknown]
  - Quality of life decreased [Unknown]
  - Chromaturia [Unknown]
  - Blood product transfusion dependent [Unknown]
  - Haemoglobin decreased [Unknown]
  - Dysphagia [Unknown]
